FAERS Safety Report 19177000 (Version 5)
Quarter: 2022Q1

REPORT INFORMATION
  Report Type: Report from Study
  Country: US (occurrence: US)
  Receive Date: 20210424
  Receipt Date: 20220106
  Transmission Date: 20220424
  Serious: Yes (Death, Hospitalization)
  Sender: FDA-Public Use
  Company Number: NVSC2021US085383

PATIENT
  Age: 91 Year
  Sex: Male

DRUGS (1)
  1. ENTRESTO [Suspect]
     Active Substance: SACUBITRIL\VALSARTAN
     Indication: Product used for unknown indication
     Dosage: UNK UNK, BID
     Route: 048

REACTIONS (13)
  - Death [Fatal]
  - Fluid retention [Unknown]
  - Peripheral swelling [Not Recovered/Not Resolved]
  - Decreased activity [Not Recovered/Not Resolved]
  - Joint swelling [Unknown]
  - Abdominal distension [Unknown]
  - Decreased appetite [Unknown]
  - Hypertension [Unknown]
  - Fall [Unknown]
  - Fatigue [Unknown]
  - Dizziness postural [Unknown]
  - Dizziness [Unknown]
  - Hypotension [Unknown]

NARRATIVE: CASE EVENT DATE: 20211029
